FAERS Safety Report 13271192 (Version 2)
Quarter: 2017Q2

REPORT INFORMATION
  Report Type: Spontaneous
  Country: DE (occurrence: DE)
  Receive Date: 20170226
  Receipt Date: 20170619
  Transmission Date: 20170830
  Serious: Yes (Other)
  Sender: FDA-Public Use
  Company Number: PHHY2017DE029685

PATIENT
  Age: 30 Year
  Sex: Female
  Weight: 51 kg

DRUGS (5)
  1. BISOPROLOL [Concomitant]
     Active Substance: BISOPROLOL
     Indication: PRODUCT USED FOR UNKNOWN INDICATION
     Dosage: 1.25 MG, QD
     Route: 065
  2. GILENYA [Suspect]
     Active Substance: FINGOLIMOD HYDROCHLORIDE
     Dosage: 0.5 MG, QD
     Route: 065
     Dates: start: 20170227
  3. BISOPROLOL [Concomitant]
     Active Substance: BISOPROLOL
     Dosage: 1.25 MG, BID
     Route: 065
  4. GILENYA [Suspect]
     Active Substance: FINGOLIMOD HYDROCHLORIDE
     Indication: MULTIPLE SCLEROSIS
     Dosage: 0.5 MG, QD
     Route: 065
     Dates: start: 20110922
  5. RAMIPRIL. [Concomitant]
     Active Substance: RAMIPRIL
     Indication: PRODUCT USED FOR UNKNOWN INDICATION
     Dosage: 1.25 MG, QD
     Route: 065

REACTIONS (21)
  - Ejection fraction decreased [Unknown]
  - Platelet count increased [Unknown]
  - Monocyte count increased [Unknown]
  - Alanine aminotransferase increased [Unknown]
  - Haematocrit increased [Unknown]
  - Low density lipoprotein increased [Unknown]
  - Haemoglobin increased [Unknown]
  - Hypokinesia [Unknown]
  - Gamma-glutamyltransferase increased [Unknown]
  - Red blood cell count increased [Unknown]
  - Neutrophil count increased [Unknown]
  - Dyspnoea [Unknown]
  - Blood cholesterol increased [Unknown]
  - N-terminal prohormone brain natriuretic peptide increased [Unknown]
  - Sinus tachycardia [Unknown]
  - Blood creatinine increased [Unknown]
  - Abdominal pain upper [Unknown]
  - Cardiac failure [Not Recovered/Not Resolved]
  - Dyspnoea exertional [Not Recovered/Not Resolved]
  - Decreased appetite [Unknown]
  - Lymphocyte count decreased [Unknown]

NARRATIVE: CASE EVENT DATE: 201609
